FAERS Safety Report 8884609 (Version 2)
Quarter: 2012Q4

REPORT INFORMATION
  Report Type: 
  Country: US (occurrence: US)
  Receive Date: 20121104
  Receipt Date: 20121206
  Transmission Date: 20130627
  Serious: Yes (Hospitalization, Other)
  Sender: FDA-Public Use
  Company Number: US-009507513-1211USA000007

PATIENT
  Age: 32 Year
  Sex: Male

DRUGS (1)
  1. MK-7535 [Suspect]
     Dosage: 40 mg, qd
     Route: 042

REACTIONS (3)
  - Colectomy [Unknown]
  - Ileectomy [Unknown]
  - Drug ineffective [Unknown]
